FAERS Safety Report 18542766 (Version 1)
Quarter: 2020Q4

REPORT INFORMATION
  Report Type: Spontaneous
  Country: US (occurrence: US)
  Receive Date: 20201125
  Receipt Date: 20201125
  Transmission Date: 20210114
  Serious: Yes (Hospitalization, Other)
  Sender: FDA-Public Use
  Company Number: US-HIKMA PHARMACEUTICALS USA INC.-US-H14001-20-05269

PATIENT
  Age: 7 Year
  Sex: Male

DRUGS (3)
  1. MIDAZOLAM. [Suspect]
     Active Substance: MIDAZOLAM
     Indication: PROCEDURAL ANXIETY
     Dosage: UNKNOWN
     Route: 048
  2. SEVOFLURANE. [Concomitant]
     Active Substance: SEVOFLURANE
     Indication: ANAESTHESIA
     Dosage: UNKNOWN
     Route: 065
  3. PROPRANOLOL [Concomitant]
     Active Substance: PROPRANOLOL HYDROCHLORIDE
     Indication: PRODUCT USED FOR UNKNOWN INDICATION
     Dosage: UNKNOWN
     Route: 065

REACTIONS (1)
  - Torsade de pointes [Recovered/Resolved]
